FAERS Safety Report 17279146 (Version 1)
Quarter: 2020Q1

REPORT INFORMATION
  Report Type: Spontaneous
  Country: US (occurrence: US)
  Receive Date: 20200116
  Receipt Date: 20200116
  Transmission Date: 20200409
  Serious: Yes (Death, Other)
  Sender: FDA-Public Use
  Company Number: US-FRESENIUS KABI-FK202000401

PATIENT
  Age: 54 Year
  Sex: Male

DRUGS (2)
  1. DESMOPRESSIN [Concomitant]
     Active Substance: DESMOPRESSIN
  2. SODIUM CHLORIDE 3% (MANUFACTURER UNKNOWN) [Suspect]
     Active Substance: SODIUM CHLORIDE
     Indication: HYPONATRAEMIA
     Dosage: 3-4 MMOL/L/DAY
     Route: 065

REACTIONS (2)
  - Osmotic demyelination syndrome [Fatal]
  - Hypernatraemia [Recovering/Resolving]
